FAERS Safety Report 9845002 (Version 2)
Quarter: 2014Q1

REPORT INFORMATION
  Report Type: Spontaneous
  Country: PL (occurrence: None)
  Receive Date: 20140122
  Receipt Date: 20140124
  Transmission Date: 20141002
  Serious: Yes (Life-Threatening, Hospitalization)
  Sender: FDA-Public Use
  Company Number: AUR-APL-2014-00321

PATIENT
  Age: 17 Year
  Sex: Female
  Weight: 55 kg

DRUGS (3)
  1. AMLODIPINE (AMLODIPINE) [Suspect]
     Indication: PRODUCT USED FOR UNKNOWN INDICATION
  2. BISOPROLOL (BISOPROLOL) [Suspect]
     Indication: PRODUCT USED FOR UNKNOWN INDICATION
  3. CAPTOPRIL (CAPTOPRIL) (CAPTOPRIL) [Suspect]
     Indication: PRODUCT USED FOR UNKNOWN INDICATION

REACTIONS (14)
  - Abdominal pain [None]
  - Vertigo [None]
  - Asthenia [None]
  - Hypothermia [None]
  - Blood pressure decreased [None]
  - Anuria [None]
  - Cyanosis [None]
  - Intentional overdose [None]
  - Hypopnoea [None]
  - Suicide attempt [None]
  - Multi-organ failure [None]
  - Shock [None]
  - Gastrointestinal haemorrhage [None]
  - Hyperglycaemia [None]
